FAERS Safety Report 15304977 (Version 1)
Quarter: 2018Q3

REPORT INFORMATION
  Report Type: Spontaneous
  Country: US (occurrence: US)
  Receive Date: 20180810
  Receipt Date: 20180810
  Transmission Date: 20181010
  Serious: Yes (Disabling, Other)
  Sender: FDA-Public Use
  Company Number: None

PATIENT
  Age: 40 Year
  Sex: Female
  Weight: 60.75 kg

DRUGS (3)
  1. ADVIL [Concomitant]
     Active Substance: IBUPROFEN
  2. CLOTRIMAZOLE AND BETAMETHASONE DIPROPIONONATE CREAM USP [Suspect]
     Active Substance: BETAMETHASONE\CLOTRIMAZOLE
     Indication: RASH
     Dosage: ?          QUANTITY:0.53 OUNCE(S);?
     Route: 061
     Dates: start: 20180728, end: 20180803
  3. CLOTRIMAZOLE AND BETAMETHASONE DIPROPIONONATE CREAM USP [Suspect]
     Active Substance: BETAMETHASONE\CLOTRIMAZOLE
     Indication: SKIN IRRITATION
     Dosage: ?          QUANTITY:0.53 OUNCE(S);?
     Route: 061
     Dates: start: 20180728, end: 20180803

REACTIONS (8)
  - Psychiatric symptom [None]
  - Crying [None]
  - Depression [None]
  - Osteoarthritis [None]
  - Abdominal pain [None]
  - Condition aggravated [None]
  - Anxiety [None]
  - Anger [None]

NARRATIVE: CASE EVENT DATE: 20180803
